FAERS Safety Report 11077687 (Version 1)
Quarter: 2015Q2

REPORT INFORMATION
  Report Type: Spontaneous
  Country: CN (occurrence: CN)
  Receive Date: 20150430
  Receipt Date: 20150430
  Transmission Date: 20150821
  Serious: Yes (Other)
  Sender: FDA-Public Use
  Company Number: CN-ASTRAZENECA-2015SE39467

PATIENT
  Sex: Male

DRUGS (3)
  1. 2 RECEPTOR AGONIST [Concomitant]
  2. PULMICORT RESPULES [Suspect]
     Active Substance: BUDESONIDE
     Indication: CHRONIC OBSTRUCTIVE PULMONARY DISEASE
     Route: 055
  3. HORMONE [Concomitant]

REACTIONS (3)
  - Hypoxia [Unknown]
  - Drug effect incomplete [Unknown]
  - Respiratory failure [Unknown]
